FAERS Safety Report 7094248-8 (Version None)
Quarter: 2010Q4

REPORT INFORMATION
  Report Type: 
  Country: None (occurrence: None)
  Receive Date: 20101110
  Receipt Date: 20101106
  Transmission Date: 20110411
  Serious: Yes (Other)
  Sender: FDA-Public Use
  Company Number: JP-PFIZER INC-2010136972

PATIENT
  Age: 79 Year
  Sex: Female

DRUGS (17)
  1. LYRICA [Suspect]
     Indication: POST HERPETIC NEURALGIA
     Dosage: 75 MG, 2X/DAY
     Route: 048
     Dates: start: 20100728, end: 20100802
  2. LYRICA [Suspect]
     Indication: ANALGESIC THERAPY
     Dosage: 75 MG, 2X/DAY
     Route: 048
     Dates: start: 20101009, end: 20101011
  3. ARASENA A [Concomitant]
     Indication: ANTIVIRAL TREATMENT
     Dosage: 300 MG, 1X/DAY
     Route: 042
     Dates: start: 20100608, end: 20100612
  4. VALTREX [Concomitant]
     Indication: ANTIVIRAL TREATMENT
     Dosage: 1000 MG, 3X/DAY
     Route: 048
     Dates: start: 20100613, end: 20100622
  5. ARASENA A [Concomitant]
     Dosage: 0.5 G, 2X/DAY
     Route: 061
     Dates: start: 20100611, end: 20100625
  6. NAIXAN [Concomitant]
     Indication: ANALGESIC THERAPY
     Dosage: UNK
     Route: 048
     Dates: start: 20100608, end: 20100622
  7. REBAMIPIDE [Concomitant]
     Dosage: UNK
     Route: 048
     Dates: start: 20100608, end: 20100622
  8. REBAMIPIDE [Concomitant]
     Dosage: UNK 2X/DAY
     Route: 048
     Dates: start: 20100803, end: 20100927
  9. RINDERON-V [Concomitant]
     Indication: PRURITUS
     Dosage: 1 G, 1X/DAY
     Route: 061
     Dates: start: 20100625, end: 20100628
  10. LOXOPROFEN [Concomitant]
     Indication: ANALGESIC THERAPY
     Dosage: UNK 2X/DAY
     Route: 048
     Dates: start: 20100629, end: 20100727
  11. LOXOPROFEN [Concomitant]
     Dosage: UNK 2X/DAY
     Route: 048
     Dates: start: 20100803, end: 20100927
  12. RANITIDINE [Concomitant]
     Dosage: 75 MG, 2X/DAY
     Route: 048
     Dates: start: 20100629, end: 20100727
  13. JUVELA [Concomitant]
     Indication: NEURALGIA
     Dosage: 50 MG, 2X/DAY
     Route: 048
     Dates: start: 20100803, end: 20100927
  14. RINDERON-VG [Concomitant]
     Indication: ECZEMA
     Dosage: UNK
     Route: 061
     Dates: start: 20100831, end: 20100920
  15. LOCOID [Concomitant]
     Dosage: 0.5 G, 1X/DAY
     Route: 061
     Dates: start: 20100928
  16. RENIVACE [Concomitant]
     Dosage: UNK 1X/DAY
     Route: 048
  17. MEVALOTIN [Concomitant]
     Dosage: UNK 1X/DAY
     Route: 048

REACTIONS (2)
  - DYSSTASIA [None]
  - PAPULE [None]
